FAERS Safety Report 26140435 (Version 1)
Quarter: 2025Q4

REPORT INFORMATION
  Report Type: Spontaneous
  Country: US (occurrence: None)
  Receive Date: 20251210
  Receipt Date: 20251210
  Transmission Date: 20260117
  Serious: Yes (Other)
  Sender: FDA-CTU
  Company Number: None

PATIENT
  Age: 47 Year
  Sex: Male
  Weight: 148.5 kg

DRUGS (1)
  1. SEMAGLUTIDE [Suspect]
     Active Substance: SEMAGLUTIDE
     Indication: Obesity
     Dosage: FREQUENCY : DAILY;
     Route: 048
     Dates: start: 20251029, end: 20251103

REACTIONS (6)
  - Flank pain [None]
  - Brain fog [None]
  - Fatigue [None]
  - Nausea [None]
  - Discomfort [None]
  - Headache [None]

NARRATIVE: CASE EVENT DATE: 20251101
